FAERS Safety Report 9553768 (Version 1)
Quarter: 2013Q3

REPORT INFORMATION
  Report Type: Report from Study
  Country: US (occurrence: US)
  Receive Date: 20130925
  Receipt Date: 20130925
  Transmission Date: 20140515
  Serious: Yes (Other)
  Sender: FDA-Public Use
  Company Number: PHEH2013US019799

PATIENT
  Age: 46 Year
  Sex: Female

DRUGS (4)
  1. GILENYA [Suspect]
     Indication: MULTIPLE SCLEROSIS
     Dosage: 0.5 MG, QD
     Route: 048
  2. WELLBUTRIN [Concomitant]
  3. RITALIN [Concomitant]
  4. BACLOFEN [Concomitant]
     Dosage: 1 DF, PRN

REACTIONS (3)
  - Biliary dilatation [Not Recovered/Not Resolved]
  - Abdominal pain [Not Recovered/Not Resolved]
  - Hepatic enzyme increased [Unknown]
